FAERS Safety Report 7944704-2 (Version None)
Quarter: 2011Q4

REPORT INFORMATION
  Report Type: 
  Country: None (occurrence: None)
  Receive Date: 20111114
  Receipt Date: 20111006
  Transmission Date: 20120403
  Serious: No
  Sender: FDA-Public Use
  Company Number: 1000017347

PATIENT
  Age: 58 Year
  Sex: Female

DRUGS (3)
  1. SAVELLA [Suspect]
     Indication: FIBROMYALGIA
     Dosage: 25 MG (12.5 MG, 1 IN 1 D), ORAL
     Route: 048
     Dates: start: 20101116, end: 20100101
  2. SAVELLA [Suspect]
     Indication: FIBROMYALGIA
     Dosage: 12.5 MG (12.5 MG, 1 IN 1 D), ORAL ; 25 MG (12.5 MG, 2 IN 1 D), ORAL
     Route: 048
     Dates: start: 20101115, end: 20101115
  3. COUMADIN [Concomitant]

REACTIONS (2)
  - DIZZINESS [None]
  - DISTURBANCE IN ATTENTION [None]
